FAERS Safety Report 9515751 (Version 1)
Quarter: 2013Q3

REPORT INFORMATION
  Report Type: Spontaneous
  Country: US (occurrence: US)
  Receive Date: 20130911
  Receipt Date: 20130911
  Transmission Date: 20140515
  Serious: Yes (Other)
  Sender: FDA-Public Use
  Company Number: US-PFIZER INC-2013259735

PATIENT
  Age: 45 Year
  Sex: Female
  Weight: 82 kg

DRUGS (7)
  1. LYRICA [Suspect]
     Dosage: UNK
     Dates: start: 2012, end: 2013
  2. EFFEXOR XR [Suspect]
     Indication: DEPRESSION
     Dosage: 150 MG, 2X/DAY
     Dates: start: 2012
  3. EFFEXOR XR [Suspect]
     Dosage: 150 MG, 1X/DAY
     Dates: start: 2012, end: 2013
  4. SEROQUEL [Concomitant]
     Indication: DEPRESSION
     Dosage: UNK
  5. SEROQUEL [Concomitant]
     Indication: INSOMNIA
  6. DOXEPIN [Concomitant]
     Indication: INSOMNIA
     Dosage: UNK
  7. PERCOCET [Concomitant]
     Indication: PAIN
     Dosage: UNK

REACTIONS (2)
  - Lower limb fracture [Recovering/Resolving]
  - Agitation [Recovering/Resolving]
